FAERS Safety Report 14878237 (Version 2)
Quarter: 2018Q2

REPORT INFORMATION
  Report Type: Not Available
  Country: US (occurrence: US)
  Receive Date: 20180510
  Receipt Date: 20180530
  Transmission Date: 20180711
  Serious: Yes (Hospitalization)
  Sender: FDA-Public Use
  Company Number: US-NEUROCRINE BIOSCIENCES INC.-2018NBI01367

PATIENT
  Sex: Female

DRUGS (14)
  1. INGREZZA [Suspect]
     Active Substance: VALBENAZINE
     Route: 048
     Dates: start: 2018
  2. POLYETHYLENE GLYCOL 3350. [Concomitant]
     Active Substance: POLYETHYLENE GLYCOL 3350
  3. HYDROXYZINE [Concomitant]
     Active Substance: HYDROXYZINE HYDROCHLORIDE
  4. PROZAC [Concomitant]
     Active Substance: FLUOXETINE HYDROCHLORIDE
  5. RITALIN [Concomitant]
     Active Substance: METHYLPHENIDATE HYDROCHLORIDE
  6. LEVOTHYROXINE. [Concomitant]
     Active Substance: LEVOTHYROXINE
  7. DULOXETINE. [Concomitant]
     Active Substance: DULOXETINE
  8. MULTIVITAMIN [Concomitant]
     Active Substance: VITAMINS
  9. TRULANCE [Concomitant]
     Active Substance: PLECANATIDE
  10. LITHIUM. [Concomitant]
     Active Substance: LITHIUM
  11. INGREZZA [Suspect]
     Active Substance: VALBENAZINE
     Indication: TARDIVE DYSKINESIA
     Route: 048
     Dates: start: 20180116, end: 2018
  12. LUNESTA [Concomitant]
     Active Substance: ESZOPICLONE
  13. ATORVASTATIN [Concomitant]
     Active Substance: ATORVASTATIN
  14. COENZYME Q10 [Concomitant]
     Active Substance: UBIDECARENONE

REACTIONS (2)
  - Fatigue [Unknown]
  - Bipolar disorder [Unknown]
